FAERS Safety Report 15005992 (Version 1)
Quarter: 2018Q2

REPORT INFORMATION
  Report Type: Spontaneous
  Country: FR (occurrence: FR)
  Receive Date: 20180613
  Receipt Date: 20180613
  Transmission Date: 20180711
  Serious: Yes (Other)
  Sender: FDA-Public Use
  Company Number: PHHY2018FR018676

PATIENT
  Age: 61 Year
  Sex: Female

DRUGS (3)
  1. DIAMOX SEQUELS [Concomitant]
     Active Substance: ACETAZOLAMIDE
     Indication: PRODUCT USED FOR UNKNOWN INDICATION
     Dosage: 0.5 DF, TID
     Route: 048
  2. AZOPT [Suspect]
     Active Substance: BRINZOLAMIDE
     Route: 065
  3. AZOPT [Suspect]
     Active Substance: BRINZOLAMIDE
     Indication: HYPERTONIA
     Route: 065

REACTIONS (3)
  - Drug ineffective [Unknown]
  - Fatigue [Unknown]
  - Macular oedema [Recovering/Resolving]
